FAERS Safety Report 24675543 (Version 4)
Quarter: 2025Q1

REPORT INFORMATION
  Report Type: Spontaneous
  Country: US (occurrence: US)
  Receive Date: 20241128
  Receipt Date: 20250220
  Transmission Date: 20250408
  Serious: Yes (Hospitalization, Other)
  Sender: PFIZER
  Company Number: US-PFIZER INC-202400309401

PATIENT
  Age: 93 Year
  Sex: Female
  Weight: 59.41 kg

DRUGS (5)
  1. BOSULIF [Suspect]
     Active Substance: BOSUTINIB MONOHYDRATE
     Indication: Chronic myeloid leukaemia
     Dates: start: 202410
  2. BOSULIF [Suspect]
     Active Substance: BOSUTINIB MONOHYDRATE
     Dosage: 300 MG, DAILY
     Route: 048
     Dates: start: 20241103
  3. BOSULIF [Suspect]
     Active Substance: BOSUTINIB MONOHYDRATE
     Dosage: 300 MG, DAILY (300MG BY MOUTH DAILY)
     Route: 048
     Dates: start: 20241103
  4. BOSULIF [Suspect]
     Active Substance: BOSUTINIB MONOHYDRATE
     Dates: start: 202411
  5. BOSULIF [Suspect]
     Active Substance: BOSUTINIB MONOHYDRATE
     Dates: start: 20241210

REACTIONS (18)
  - Illness [Unknown]
  - Anaemia [Unknown]
  - Fatigue [Recovering/Resolving]
  - Pallor [Recovering/Resolving]
  - Gait disturbance [Recovering/Resolving]
  - Peripheral swelling [Not Recovered/Not Resolved]
  - Abdominal discomfort [Unknown]
  - Balance disorder [Unknown]
  - Nausea [Unknown]
  - Decreased appetite [Unknown]
  - Contusion [Unknown]
  - Haemorrhagic diathesis [Unknown]
  - Constipation [Unknown]
  - Haematocrit decreased [Unknown]
  - Platelet count increased [Unknown]
  - Carbon dioxide increased [Unknown]
  - Electrophoresis protein abnormal [Unknown]
  - Gait disturbance [Unknown]

NARRATIVE: CASE EVENT DATE: 20241106
